FAERS Safety Report 6229670-2 (Version None)
Quarter: 2009Q2

REPORT INFORMATION
  Report Type: 
  Country: None (occurrence: None)
  Receive Date: 20090615
  Receipt Date: 20090604
  Transmission Date: 20091009
  Serious: Yes (Other)
  Sender: FDA-Public Use
  Company Number: JP-ASTRAZENECA-2009AP00361

PATIENT
  Sex: Female

DRUGS (4)
  1. ARIMIDEX [Suspect]
     Indication: BREAST CANCER
     Route: 048
     Dates: start: 20040101
  2. ACTONEL [Concomitant]
     Indication: BONE DENSITY DECREASED
     Dosage: DOSE UNKNOWN
     Route: 048
  3. VITAMIN PREPARATIONS [Concomitant]
     Indication: BONE DENSITY DECREASED
     Dosage: DOSE UNKNOWN
     Route: 065
  4. CALCIUM COMPOUNDS AND PREPARATIONS [Concomitant]
     Indication: BONE DENSITY DECREASED
     Dosage: DOSE UNKNOWN
     Route: 065

REACTIONS (2)
  - BONE DENSITY DECREASED [None]
  - GASTRIC CANCER [None]
